FAERS Safety Report 8008594-4 (Version None)
Quarter: 2011Q4

REPORT INFORMATION
  Report Type: 
  Country: None (occurrence: None)
  Receive Date: 20111227
  Receipt Date: 20111214
  Transmission Date: 20120403
  Serious: Yes (Hospitalization)
  Sender: FDA-Public Use
  Company Number: BE-ROCHE-1016611

PATIENT
  Sex: Male
  Weight: 72 kg

DRUGS (7)
  1. BI 201335 (HCV PROTEASE INHIBITOR) [Suspect]
     Indication: HEPATITIS C
     Route: 048
     Dates: start: 20111117
  2. ACETAMINOPHEN [Concomitant]
     Indication: INFLUENZA LIKE ILLNESS
     Route: 048
     Dates: start: 20110617
  3. PEGINTERFERON ALFA-2A [Suspect]
     Indication: HEPATITIS C
     Route: 058
     Dates: start: 20110617
  4. LORMETAZEPAM [Concomitant]
     Indication: INSOMNIA
     Route: 048
     Dates: start: 20111021
  5. COPEGUS [Suspect]
     Indication: HEPATITIS C
     Route: 048
     Dates: start: 20110617
  6. CITALOPRAM HYDROBROMIDE [Concomitant]
     Indication: NERVOUSNESS
     Route: 048
     Dates: start: 20110804
  7. PRAZEPAM [Concomitant]
     Indication: NERVOUSNESS
     Route: 048
     Dates: start: 20110601

REACTIONS (4)
  - EPISTAXIS [None]
  - HEADACHE [None]
  - MUSCULAR WEAKNESS [None]
  - CHEST PAIN [None]
